FAERS Safety Report 16209044 (Version 1)
Quarter: 2019Q2

REPORT INFORMATION
  Report Type: Spontaneous
  Country: US (occurrence: US)
  Receive Date: 20190417
  Receipt Date: 20190417
  Transmission Date: 20190711
  Serious: Yes (Hospitalization, Other)
  Sender: FDA-Public Use
  Company Number: US-ASTRAZENECA-2019SE55564

PATIENT
  Age: 28621 Day
  Sex: Female
  Weight: 72.6 kg

DRUGS (11)
  1. CEFTRIAXONE. [Concomitant]
     Active Substance: CEFTRIAXONE
     Indication: URINARY TRACT INFECTION
     Route: 042
     Dates: start: 20181126
  2. LISINOPRIL. [Suspect]
     Active Substance: LISINOPRIL
     Route: 048
  3. LIDOCAINE. [Concomitant]
     Active Substance: LIDOCAINE
     Indication: CARDIAC ARREST
     Dosage: CONTINUOUSLY
     Route: 042
     Dates: start: 20181126, end: 20181126
  4. ASPIRIN. [Concomitant]
     Active Substance: ASPIRIN
     Route: 048
     Dates: start: 201812
  5. BRILINTA [Suspect]
     Active Substance: TICAGRELOR
     Indication: STENT PLACEMENT
     Route: 048
     Dates: start: 20181126
  6. CALCIUM PHOSPHATE [Concomitant]
     Active Substance: CALCIUM PHOSPHATE
     Route: 048
  7. BRILINTA [Suspect]
     Active Substance: TICAGRELOR
     Indication: MYOCARDIAL INFARCTION
     Route: 048
     Dates: start: 20181126
  8. DOPAMINE [Concomitant]
     Active Substance: DOPAMINE\DOPAMINE HYDROCHLORIDE
     Indication: BRADYCARDIA
     Dosage: CONTINUOUSLY
     Route: 042
     Dates: start: 20181126, end: 20181126
  9. PEPCID [Concomitant]
     Active Substance: FAMOTIDINE
     Indication: STRESS ULCER
     Route: 042
     Dates: start: 20181126
  10. PHENYLEPHRINE [Concomitant]
     Active Substance: PHENYLEPHRINE\PHENYLEPHRINE HYDROCHLORIDE
     Indication: BLOOD PRESSURE ABNORMAL
     Dosage: CONTINUOUSLY
     Route: 042
     Dates: start: 20181126
  11. ATORVASTATIN [Concomitant]
     Active Substance: ATORVASTATIN
     Route: 048

REACTIONS (7)
  - Ventricular fibrillation [Unknown]
  - Gastrointestinal haemorrhage [Recovered/Resolved]
  - Cardiac arrest [Unknown]
  - Myocardial infarction [Unknown]
  - Acute myocardial infarction [Unknown]
  - Hypertension [Not Recovered/Not Resolved]
  - Dyslipidaemia [Not Recovered/Not Resolved]

NARRATIVE: CASE EVENT DATE: 20181126
